FAERS Safety Report 17856529 (Version 3)
Quarter: 2020Q3

REPORT INFORMATION
  Report Type: Spontaneous
  Country: US (occurrence: US)
  Receive Date: 20200603
  Receipt Date: 20200825
  Transmission Date: 20201103
  Serious: No
  Sender: FDA-Public Use
  Company Number: US-LEXICON PHARMACEUTICALS, INC-20-1606-00420

PATIENT
  Age: 73 Year
  Sex: Male

DRUGS (5)
  1. XERMELO [Suspect]
     Active Substance: TELOTRISTAT ETHYL
     Indication: PANCREATIC CARCINOMA
     Dates: start: 20200430
  2. LEVOTHYROXINE. [Concomitant]
     Active Substance: LEVOTHYROXINE
  3. GLIPIZIDE. [Concomitant]
     Active Substance: GLIPIZIDE
  4. SANDOSTATIN [Concomitant]
     Active Substance: OCTREOTIDE ACETATE
  5. LEVOTHYROXINE. [Concomitant]
     Active Substance: LEVOTHYROXINE

REACTIONS (5)
  - Anal incontinence [Unknown]
  - Serum serotonin increased [Unknown]
  - Blood glucose increased [Unknown]
  - Therapeutic product effect variable [Unknown]
  - Treatment noncompliance [Unknown]
